FAERS Safety Report 4707481-4 (Version None)
Quarter: 2005Q3

REPORT INFORMATION
  Report Type: 
  Country: None (occurrence: None)
  Receive Date: 20050706
  Receipt Date: 20050613
  Transmission Date: 20060218
  Serious: Yes (Hospitalization)
  Sender: FDA-Public Use
  Company Number: JP-GLAXOSMITHKLINE-B0384739A

PATIENT
  Age: 68 Year
  Sex: Male

DRUGS (2)
  1. VALTREX [Suspect]
     Indication: HERPES ZOSTER
     Dosage: 1000MG THREE TIMES PER DAY
     Route: 048
     Dates: start: 20050603
  2. RINDERON [Suspect]
     Dosage: 1.5MG PER DAY
     Route: 048
     Dates: start: 20050603

REACTIONS (7)
  - BLOOD PRESSURE INCREASED [None]
  - CHEST PAIN [None]
  - EUPHORIC MOOD [None]
  - HEADACHE [None]
  - INSOMNIA [None]
  - MYALGIA [None]
  - OVERDOSE [None]
